FAERS Safety Report 7979314-4 (Version None)
Quarter: 2011Q4

REPORT INFORMATION
  Report Type: 
  Country: None (occurrence: None)
  Receive Date: 20111214
  Receipt Date: 20111017
  Transmission Date: 20120403
  Serious: Yes (Other)
  Sender: FDA-Public Use
  Company Number: CA-BAXTER-2011BH039169

PATIENT

DRUGS (2)
  1. FEIBA [Suspect]
     Indication: OFF LABEL USE
     Route: 065
  2. FEIBA [Suspect]
     Indication: POST PROCEDURAL HAEMORRHAGE
     Route: 065

REACTIONS (1)
  - RENAL FAILURE [None]
